FAERS Safety Report 6726454-3 (Version None)
Quarter: 2010Q2

REPORT INFORMATION
  Report Type: 
  Country: None (occurrence: None)
  Receive Date: 20100514
  Receipt Date: 20100506
  Transmission Date: 20101027
  Serious: Yes (Death)
  Sender: FDA-Public Use
  Company Number: US-BAXTER-2010BH012668

PATIENT
  Age: 62 Year
  Sex: Female
  Weight: 88 kg

DRUGS (6)
  1. ENDOXAN BAXTER [Suspect]
     Indication: DRUG USE FOR UNKNOWN INDICATION
     Route: 065
  2. DEXAMETHASONE [Suspect]
     Indication: DRUG USE FOR UNKNOWN INDICATION
     Route: 065
  3. DOXORUBICIN HCL [Suspect]
     Indication: MULTIPLE MYELOMA
     Route: 065
     Dates: start: 20100419
  4. BORTEZOMIB [Suspect]
     Indication: DRUG USE FOR UNKNOWN INDICATION
     Route: 065
  5. ASPIRIN [Concomitant]
     Indication: DRUG USE FOR UNKNOWN INDICATION
     Route: 065
  6. SYNTHROID [Concomitant]
     Indication: HYPOTHYROIDISM
     Route: 065

REACTIONS (1)
  - PULMONARY EMBOLISM [None]
